FAERS Safety Report 7031146-X (Version None)
Quarter: 2010Q4

REPORT INFORMATION
  Report Type: 
  Country: None (occurrence: None)
  Receive Date: 20101006
  Receipt Date: 20100921
  Transmission Date: 20110411
  Serious: Yes (Other)
  Sender: FDA-Public Use
  Company Number: IT-GENENTECH-307193

PATIENT
  Sex: Male

DRUGS (6)
  1. LUCENTIS [Suspect]
     Indication: MACULAR DEGENERATION
     Dosage: UNK
     Route: 031
     Dates: start: 20091022
  2. LUCENTIS [Suspect]
     Route: 031
  3. LUCENTIS [Suspect]
     Route: 031
  4. LUCENTIS [Suspect]
     Route: 031
  5. LUCENTIS [Suspect]
     Dosage: UNK
     Route: 031
     Dates: start: 20100812
  6. CARDIOASPIRIN [Concomitant]
     Indication: PRODUCT USED FOR UNKNOWN INDICATION
     Dosage: UNK
     Dates: start: 19850101, end: 20100812

REACTIONS (1)
  - VITREOUS HAEMORRHAGE [None]
